FAERS Safety Report 10016074 (Version 2)
Quarter: 2014Q1

REPORT INFORMATION
  Report Type: Report from Study
  Country: JP (occurrence: JP)
  Receive Date: 20140317
  Receipt Date: 20140326
  Transmission Date: 20141002
  Serious: Yes (Death)
  Sender: FDA-Public Use
  Company Number: JP-UCBSA-114702

PATIENT
  Age: 76 Year
  Sex: Male

DRUGS (2)
  1. E KEPPRA [Suspect]
     Indication: PARTIAL SEIZURES WITH SECONDARY GENERALISATION
     Route: 048
     Dates: start: 20130928, end: 20131005
  2. TEGRETOL [Concomitant]
     Route: 048
     Dates: start: 20130928, end: 20131005

REACTIONS (1)
  - Cerebral ischaemia [Fatal]
